FAERS Safety Report 18034173 (Version 6)
Quarter: 2020Q4

REPORT INFORMATION
  Report Type: Spontaneous
  Country: FR (occurrence: FR)
  Receive Date: 20200716
  Receipt Date: 20201029
  Transmission Date: 20210113
  Serious: Yes (Hospitalization, Other)
  Sender: FDA-Public Use
  Company Number: FR-PFIZER INC-2020273285

PATIENT
  Age: 54 Year
  Sex: Female
  Weight: 75 kg

DRUGS (7)
  1. BRAFTOVI [Suspect]
     Active Substance: ENCORAFENIB
     Indication: OFF LABEL USE
  2. BRAFTOVI [Suspect]
     Active Substance: ENCORAFENIB
     Indication: METASTATIC MALIGNANT MELANOMA
     Dosage: 6 DF, 1X/DAY (450 MG PER DAY)
     Route: 048
     Dates: start: 20200623, end: 20200630
  3. EFFEXOR [Concomitant]
     Active Substance: VENLAFAXINE HYDROCHLORIDE
     Dosage: 2 DF,BID (2/DAY)
     Route: 065
  4. THERALENE [Concomitant]
     Active Substance: TRIMEPRAZINE
     Dosage: 2DF, IN EVENING
     Route: 065
  5. METFORMINE [METFORMIN HYDROCHLORIDE] [Concomitant]
     Active Substance: METFORMIN HYDROCHLORIDE
     Dosage: UNK
     Route: 065
  6. TERCIAN [CYAMEMAZINE] [Concomitant]
     Active Substance: CYAMEMAZINE
     Dosage: UNK
     Route: 065
  7. XEPLION [Concomitant]
     Active Substance: PALIPERIDONE PALMITATE
     Dosage: 1 DF, MONTHLY
     Route: 065

REACTIONS (5)
  - Palmar-plantar erythrodysaesthesia syndrome [Recovered/Resolved]
  - Toxic skin eruption [Recovering/Resolving]
  - Rash maculo-papular [Recovered/Resolved]
  - Off label use [Unknown]
  - Pruritus [Recovering/Resolving]

NARRATIVE: CASE EVENT DATE: 20200623
